FAERS Safety Report 6518258-1 (Version None)
Quarter: 2009Q4

REPORT INFORMATION
  Report Type: 
  Country: None (occurrence: None)
  Receive Date: 20091223
  Receipt Date: 20091223
  Transmission Date: 20100525
  Serious: No
  Sender: FDA-Public Use
  Company Number: None

PATIENT
  Sex: Male
  Weight: 15.8759 kg

DRUGS (2)
  1. AMOXICILLIN [Suspect]
     Indication: COUGH
     Dosage: 8 ML 2X DAILY ORAL
     Route: 048
     Dates: start: 20091206, end: 20091208
  2. AMOXICILLIN [Suspect]
     Indication: NASOPHARYNGITIS
     Dosage: 8 ML 2X DAILY ORAL
     Route: 048
     Dates: start: 20091206, end: 20091208

REACTIONS (1)
  - PSYCHOMOTOR HYPERACTIVITY [None]
